FAERS Safety Report 15631925 (Version 1)
Quarter: 2018Q4

REPORT INFORMATION
  Report Type: Spontaneous
  Country: US (occurrence: US)
  Receive Date: 20181113
  Receipt Date: 20181113
  Transmission Date: 20190205
  Serious: No
  Sender: FDA-Public Use
  Company Number: None

PATIENT
  Age: 61 Year
  Sex: Male

DRUGS (2)
  1. RIBAVIRIN TAB 200MG [Suspect]
     Active Substance: RIBAVIRIN
     Indication: HEPATITIS C
     Dates: start: 20181008
  2. EPCLUSA [Concomitant]
     Active Substance: SOFOSBUVIR\VELPATASVIR

REACTIONS (1)
  - Haemoglobin abnormal [None]

NARRATIVE: CASE EVENT DATE: 20181020
